FAERS Safety Report 7490879-1 (Version None)
Quarter: 2011Q2

REPORT INFORMATION
  Report Type: 
  Country: None (occurrence: None)
  Receive Date: 20110517
  Receipt Date: 20110517
  Transmission Date: 20111010
  Serious: Yes (Other)
  Sender: FDA-Public Use
  Company Number: None

PATIENT
  Age: 69 Year
  Sex: Female
  Weight: 48.0813 kg

DRUGS (1)
  1. CUPRIMINE [Suspect]
     Indication: BLOOD HEAVY METAL INCREASED
     Dosage: 250MG 3 TIMES DAILY PO
     Route: 048
     Dates: start: 20110507, end: 20110516

REACTIONS (1)
  - CONTUSION [None]
